FAERS Safety Report 7286453-2 (Version None)
Quarter: 2011Q1

REPORT INFORMATION
  Report Type: 
  Country: None (occurrence: None)
  Receive Date: 20110210
  Receipt Date: 20110207
  Transmission Date: 20110831
  Serious: Yes (Hospitalization)
  Sender: FDA-Public Use
  Company Number: DE-PFIZER INC-2011027817

PATIENT
  Age: 51 Year
  Sex: Male

DRUGS (7)
  1. ONDANSETRON [Concomitant]
     Indication: PROPHYLAXIS
  2. PREDNISOLONE [Concomitant]
     Indication: SMALL INTESTINE CARCINOMA
     Dosage: 100 MG, CYCLIC,  ON DAYS 1-5
  3. VINCRISTINE [Suspect]
     Indication: SMALL INTESTINE CARCINOMA
     Dosage: 2 MG, CYCLIC, DAY 1
  4. DOXORUBICIN HCL [Suspect]
     Indication: SMALL INTESTINE CARCINOMA
     Dosage: 50 MG/M2, CYCLIC, DAY 1
  5. MESNA [Concomitant]
     Indication: PROPHYLAXIS
  6. CYCLOPHOSPHAMIDE [Suspect]
     Indication: SMALL INTESTINE CARCINOMA
     Dosage: 750 MG/M2, CYCLIC, DAY 1
  7. RITUXIMAB [Concomitant]
     Indication: SMALL INTESTINE CARCINOMA
     Dosage: 375 MG/M2, CYCLIC, DAY 0

REACTIONS (1)
  - COLITIS ISCHAEMIC [None]
